FAERS Safety Report 4789887-0 (Version None)
Quarter: 2005Q4

REPORT INFORMATION
  Report Type: 
  Country: None (occurrence: None)
  Receive Date: 20051006
  Receipt Date: 20050926
  Transmission Date: 20060501
  Serious: Yes (Hospitalization)
  Sender: FDA-Public Use
  Company Number: FR-NOVOPROD-247209

PATIENT
  Age: 78 Year
  Sex: Female
  Weight: 55 kg

DRUGS (9)
  1. ACTRAPID [Suspect]
     Indication: ILL-DEFINED DISORDER
     Dates: start: 20050830
  2. MIXTARD 30 NOVOLET [Suspect]
     Indication: ILL-DEFINED DISORDER
     Dates: start: 20050830
  3. OXACILLIN [Concomitant]
     Indication: ILL-DEFINED DISORDER
     Dosage: N/A
     Route: 042
     Dates: start: 20050824
  4. OFLOCET [Concomitant]
     Indication: ILL-DEFINED DISORDER
     Dosage: 400 MG DAILY
     Route: 048
     Dates: start: 20050824
  5. TARGOCID [Concomitant]
     Indication: ILL-DEFINED DISORDER
     Route: 042
     Dates: start: 20050830, end: 20050910
  6. OROKEN [Concomitant]
     Indication: ILL-DEFINED DISORDER
     Dosage: N/A
     Dates: start: 20050704, end: 20050711
  7. FLAGYL [Concomitant]
     Indication: ILL-DEFINED DISORDER
     Dosage: N/A
     Dates: start: 20050704, end: 20050711
  8. ORBENINE [Concomitant]
     Indication: ILL-DEFINED DISORDER
     Dates: start: 20050820, end: 20050822
  9. VANCOMYCIN [Concomitant]
     Indication: ILL-DEFINED DISORDER
     Route: 042
     Dates: start: 20050824, end: 20050830

REACTIONS (2)
  - PYREXIA [None]
  - RASH MACULAR [None]
